FAERS Safety Report 5497669-X (Version None)
Quarter: 2007Q4

REPORT INFORMATION
  Report Type: 
  Country: None (occurrence: None)
  Receive Date: 20071025
  Receipt Date: 20070202
  Transmission Date: 20080405
  Serious: No
  Sender: FDA-Public Use
  Company Number: A0638148A

PATIENT
  Sex: Male

DRUGS (4)
  1. ADVAIR DISKUS 100/50 [Suspect]
     Route: 055
     Dates: start: 20070201
  2. DIGOXIN [Concomitant]
  3. MONOPRIL [Concomitant]
  4. STATICIN [Concomitant]

REACTIONS (1)
  - NERVOUSNESS [None]
